FAERS Safety Report 5248634-9 (Version None)
Quarter: 2007Q1

REPORT INFORMATION
  Report Type: 
  Country: None (occurrence: None)
  Receive Date: 20070222
  Receipt Date: 20070212
  Transmission Date: 20070707
  Serious: Yes (Other)
  Sender: FDA-Public Use
  Company Number: 07H-163-0311991-00

PATIENT
  Age: 75 Year
  Sex: Male

DRUGS (6)
  1. BUPIVACAINE  INJECTION (BUPIVACAINE HYDROCHLORIDE  INJECTION)  (BUPIVA [Suspect]
     Indication: ANAESTHESIA
     Dosage: RETROBULBAR
     Route: 056
  2. LIDOCAINE [Suspect]
     Indication: ANAESTHESIA
     Dosage: RETROBULBAR
     Route: 056
  3. MIDAZOLAM HCL [Concomitant]
  4. PROPOFOL [Concomitant]
  5. LIDOCAINE [Concomitant]
  6. SUCCINYLCHOLINE CHLORIDE [Concomitant]

REACTIONS (8)
  - APNOEA [None]
  - CONFUSIONAL STATE [None]
  - DRUG ADMINISTERED AT INAPPROPRIATE SITE [None]
  - GRAND MAL CONVULSION [None]
  - HYPERTENSION [None]
  - HYPOTENSION [None]
  - NO THERAPEUTIC RESPONSE [None]
  - TACHYCARDIA [None]
